FAERS Safety Report 8256942-2 (Version None)
Quarter: 2012Q2

REPORT INFORMATION
  Report Type: 
  Country: None (occurrence: None)
  Receive Date: 20120403
  Receipt Date: 20120326
  Transmission Date: 20120825
  Serious: Yes (Other)
  Sender: FDA-Public Use
  Company Number: CA-JNJFOC-20120312608

PATIENT
  Sex: Male
  Weight: 95 kg

DRUGS (3)
  1. REMICADE [Suspect]
     Indication: COLITIS ULCERATIVE
     Route: 042
     Dates: start: 20090930
  2. PREDNISONE TAB [Concomitant]
     Route: 065
  3. ANTIBIOTICS [Concomitant]
     Dosage: FOR 5 DAYS
     Route: 065

REACTIONS (1)
  - NEPHROLITHIASIS [None]
